FAERS Safety Report 6425184-5 (Version None)
Quarter: 2009Q4

REPORT INFORMATION
  Report Type: 
  Country: None (occurrence: None)
  Receive Date: 20091102
  Receipt Date: 20091102
  Transmission Date: 20100525
  Serious: No
  Sender: FDA-Public Use
  Company Number: None

PATIENT
  Sex: Male
  Weight: 74.8435 kg

DRUGS (2)
  1. ZOMETA [Suspect]
     Dosage: INFUSION OF 4MG. MONTHLY IV DRIP
     Route: 041
     Dates: start: 20090318, end: 20090415
  2. ZOMETA [Suspect]
     Dosage: INFUSION OF 4MG. MONTHLY IV DRIP
     Route: 041
     Dates: start: 20090415, end: 20090513

REACTIONS (3)
  - BLOOD PRESSURE INCREASED [None]
  - RENAL FAILURE [None]
  - WEIGHT INCREASED [None]
